FAERS Safety Report 8479017-6 (Version None)
Quarter: 2012Q2

REPORT INFORMATION
  Report Type: 
  Country: None (occurrence: None)
  Receive Date: 20120629
  Receipt Date: 20120626
  Transmission Date: 20120825
  Serious: Yes (Other)
  Sender: FDA-Public Use
  Company Number: CA-MERCK-1206USA04617

PATIENT
  Sex: Female

DRUGS (3)
  1. ACETAMINOPHEN [Concomitant]
     Route: 065
  2. MAXALT [Suspect]
     Indication: MIGRAINE
     Route: 065
  3. AXERT [Suspect]
     Route: 065

REACTIONS (5)
  - APHASIA [None]
  - MEDICATION ERROR [None]
  - SPEECH DISORDER [None]
  - HYPOAESTHESIA [None]
  - TREMOR [None]
